FAERS Safety Report 4263799-3 (Version None)
Quarter: 2004Q1

REPORT INFORMATION
  Report Type: 
  Country: None (occurrence: None)
  Receive Date: 20040102
  Receipt Date: 20031215
  Transmission Date: 20041129
  Serious: Yes (Other)
  Sender: FDA-Public Use
  Company Number: USA031254648

PATIENT
  Age: 84 Year
  Sex: Female
  Weight: 91 kg

DRUGS (9)
  1. EVISTA [Suspect]
  2. HYDROCHLOROTHIAZIDE [Concomitant]
  3. AMBIEN [Concomitant]
  4. LASIX [Concomitant]
  5. ACEON (PERINDOPRIL) [Concomitant]
  6. LEVOTHYROXINE SODIUM [Concomitant]
  7. AMIODARONE HCL [Concomitant]
  8. NORVASC [Concomitant]
  9. ATENOLOL [Concomitant]

REACTIONS (3)
  - ATRIAL FIBRILLATION [None]
  - CARDIAC PROCEDURE COMPLICATION [None]
  - CEREBROVASCULAR ACCIDENT [None]
